FAERS Safety Report 7721613-5 (Version None)
Quarter: 2011Q3

REPORT INFORMATION
  Report Type: 
  Country: None (occurrence: None)
  Receive Date: 20110831
  Receipt Date: 20110829
  Transmission Date: 20111222
  Serious: Yes (Death)
  Sender: FDA-Public Use
  Company Number: KR-GENZYME-FLUD-1001054

PATIENT

DRUGS (14)
  1. METHOTREXATE [Concomitant]
     Dosage: 10 MG/M2, QD ON DAYS +3, +6, +11
     Route: 065
  2. CYCLOSPORINE [Concomitant]
     Dosage: 4-6 MG/KG BID ADJUSTED AFTER THERAPEUTIC DRUG MONITORING AT A LEVEL OF 200-400 NG/ML
     Route: 048
  3. FLUDARA [Suspect]
     Indication: STEM CELL TRANSPLANT
     Dosage: 40 MG/M2, QD X 4 DAYS OVER 30 MINUTES ON DAYS -6 TO -3
     Route: 042
  4. FLUDARA [Suspect]
     Indication: MYELODYSPLASTIC SYNDROME
  5. BUSULFAN [Suspect]
     Indication: STEM CELL TRANSPLANT
     Dosage: 130 MG/M2, QD X 4 DAYS OVER 3 HOURS
     Route: 042
  6. METHOTREXATE [Concomitant]
     Indication: PROPHYLAXIS AGAINST GRAFT VERSUS HOST DISEASE
     Dosage: 15 MG/M2, QD ON DAY +1
     Route: 065
  7. CYCLOSPORINE [Concomitant]
     Indication: PROPHYLAXIS AGAINST GRAFT VERSUS HOST DISEASE
     Dosage: 1.5 MG/KG, Q12HR, OVER 3 HOURS ON DAYS -1 TO +14
     Route: 042
  8. URSODIOL [Concomitant]
     Indication: PROPHYLAXIS
     Dosage: 100 MG, TID
     Route: 048
  9. BUSULFAN [Suspect]
     Indication: MYELODYSPLASTIC SYNDROME
  10. CIPROFLOXACIN [Concomitant]
     Indication: INFECTION PROPHYLAXIS
     Dosage: 500 MG, BID
     Route: 048
  11. DIFLUCAN [Concomitant]
     Indication: INFECTION PROPHYLAXIS
     Dosage: 100 MG, QD
     Route: 048
  12. ACYCLOVIR [Concomitant]
     Indication: INFECTION PROPHYLAXIS
     Dosage: 250 MG/M2, Q8H
     Route: 042
  13. SULFAMETHOXAZOLE W [Concomitant]
     Indication: INFECTION PROPHYLAXIS
     Dosage: 960 MG, 3X/W
     Route: 048
  14. HEPARIN [Concomitant]
     Indication: PROPHYLAXIS
     Dosage: 100 U/KG, QD CONTINUOUS INFUSION
     Route: 041

REACTIONS (1)
  - SEPTIC SHOCK [None]
